FAERS Safety Report 16593077 (Version 1)
Quarter: 2019Q3

REPORT INFORMATION
  Report Type: Report from Study
  Country: US (occurrence: US)
  Receive Date: 20190718
  Receipt Date: 20190718
  Transmission Date: 20191004
  Serious: Yes (Death, Hospitalization)
  Sender: FDA-Public Use
  Company Number: US-BAUSCH-BL-2019-020260

PATIENT
  Age: 69 Year
  Sex: Female
  Weight: 99.88 kg

DRUGS (2)
  1. XIFAXAN [Suspect]
     Active Substance: RIFAXIMIN
     Indication: NON-ALCOHOLIC STEATOHEPATITIS
     Route: 048
     Dates: start: 2018, end: 20190629
  2. LACTULOSE. [Suspect]
     Active Substance: LACTULOSE
     Indication: NON-ALCOHOLIC STEATOHEPATITIS
     Route: 048
     Dates: end: 20190629

REACTIONS (3)
  - Therapy cessation [Unknown]
  - Death [Fatal]
  - Hospitalisation [Unknown]

NARRATIVE: CASE EVENT DATE: 201906
